FAERS Safety Report 15378208 (Version 2)
Quarter: 2018Q4

REPORT INFORMATION
  Report Type: Report from Study
  Country: JP (occurrence: JP)
  Receive Date: 20180913
  Receipt Date: 20181102
  Transmission Date: 20190204
  Serious: Yes (Death, Hospitalization)
  Sender: FDA-Public Use
  Company Number: JP-PFIZER INC-2016342517

PATIENT
  Age: 74 Year
  Sex: Female

DRUGS (9)
  1. XELJANZ [Suspect]
     Active Substance: TOFACITINIB CITRATE
     Dosage: 5 MG, DAILY
     Route: 048
     Dates: start: 20160719, end: 20180604
  2. DENOTAS [Concomitant]
     Active Substance: CALCIUM CARBONATE\CHOLECALCIFEROL\MAGNESIUM CARBONATE
     Route: 048
  3. NORVASC [Concomitant]
     Active Substance: AMLODIPINE BESYLATE
     Dosage: UNK
     Route: 048
     Dates: start: 20150901
  4. BIOFERMIN /07746301/ [Concomitant]
     Route: 048
  5. MUCOSTA [Concomitant]
     Active Substance: REBAMIPIDE
     Route: 048
  6. ELCITONIN [Concomitant]
     Active Substance: ELCATONIN
  7. XELJANZ [Suspect]
     Active Substance: TOFACITINIB CITRATE
     Indication: RHEUMATOID ARTHRITIS
     Dosage: 5 MG, 1X/DAY
     Route: 048
     Dates: start: 20150707, end: 20160105
  8. AZULFIDINE [Concomitant]
     Active Substance: SULFASALAZINE
     Indication: RHEUMATOID ARTHRITIS
     Dosage: UNK
     Dates: end: 20161016
  9. AZULFIDINE [Concomitant]
     Active Substance: SULFASALAZINE
     Dosage: UNK

REACTIONS (3)
  - Pyrexia [Recovered/Resolved]
  - Dehydration [Fatal]
  - Diarrhoea [Recovered/Resolved]

NARRATIVE: CASE EVENT DATE: 20160102
